FAERS Safety Report 9820160 (Version 1)
Quarter: 2013Q4

REPORT INFORMATION
  Report Type: Spontaneous
  Country: US (occurrence: None)
  Receive Date: 20131223
  Receipt Date: 20131223
  Transmission Date: 20140711
  Serious: Yes (Other)
  Sender: FDA-Public Use
  Company Number: 218414

PATIENT
  Age: 70 Year
  Sex: Female

DRUGS (2)
  1. PICATO [Suspect]
     Dates: start: 20120629, end: 20120629
  2. THYROID (THYROID) [Concomitant]

REACTIONS (4)
  - Application site pain [None]
  - Application site vesicles [None]
  - Application site pain [None]
  - Application site erythema [None]
